FAERS Safety Report 4323697-3 (Version None)
Quarter: 2004Q1

REPORT INFORMATION
  Report Type: 
  Country: None (occurrence: None)
  Receive Date: 20040322
  Receipt Date: 20040301
  Transmission Date: 20041129
  Serious: Yes (Congenital Anomaly)
  Sender: FDA-Public Use
  Company Number: B0325070A

PATIENT

DRUGS (3)
  1. BECONASE [Suspect]
     Dosage: TRANSPLACENTARY
     Route: 064
  2. ROXITHROMYCIN (FORMULATION UNKNOWN) (ROXITHROMYCIN) [Suspect]
     Dosage: TRANSPLACENTARY
     Route: 064
  3. PREDNISONE [Suspect]
     Indication: ASTHMA
     Dosage: TRANSPLACENTARY
     Route: 064

REACTIONS (2)
  - CONGENITAL VENTRICULAR SEPTAL DEFECT [None]
  - MATERNAL DRUGS AFFECTING FOETUS [None]
